FAERS Safety Report 22274390 (Version 1)
Quarter: 2023Q2

REPORT INFORMATION
  Report Type: Spontaneous
  Country: US (occurrence: US)
  Receive Date: 20230502
  Receipt Date: 20230502
  Transmission Date: 20230722
  Serious: No
  Sender: FDA-Public Use
  Company Number: US-PFIZER INC-PV202300006045

PATIENT
  Age: 64 Year
  Sex: Female

DRUGS (1)
  1. IBRANCE [Suspect]
     Active Substance: PALBOCICLIB
     Indication: Breast cancer female
     Dosage: 100 MG, 1 TABLET DAILY WITH FOOD, DAY 8 THROUGH 28 OF CHEMOTHERAPY CYCLE
     Route: 048

REACTIONS (3)
  - Neoplasm progression [Unknown]
  - Weight decreased [Unknown]
  - Dyspnoea [Unknown]
